FAERS Safety Report 5952299-8 (Version None)
Quarter: 2008Q4

REPORT INFORMATION
  Report Type: 
  Country: None (occurrence: None)
  Receive Date: 20081113
  Receipt Date: 20081104
  Transmission Date: 20090506
  Serious: Yes (Other)
  Sender: FDA-Public Use
  Company Number: BR-PFIZER INC-2008093788

PATIENT
  Age: 67 Year
  Sex: Female

DRUGS (2)
  1. LIPITOR [Suspect]
     Indication: BLOOD CHOLESTEROL INCREASED
     Route: 048
  2. LIPITOR [Suspect]
     Indication: ANGINA PECTORIS

REACTIONS (4)
  - ABASIA [None]
  - CHEST PAIN [None]
  - MALAISE [None]
  - PAIN [None]
